FAERS Safety Report 5014397-5 (Version None)
Quarter: 2006Q2

REPORT INFORMATION
  Report Type: 
  Country: None (occurrence: None)
  Receive Date: 20060531
  Receipt Date: 20060519
  Transmission Date: 20061013
  Serious: Yes (Other)
  Sender: FDA-Public Use
  Company Number: US-JNJFOC-20060504490

PATIENT
  Sex: Female

DRUGS (12)
  1. REMICADE [Suspect]
     Indication: RHEUMATOID ARTHRITIS
     Route: 042
  2. REMICADE [Suspect]
     Route: 042
  3. PAXIL [Concomitant]
  4. STRATTERA [Concomitant]
  5. ADDERALL 10 [Concomitant]
  6. ADDERALL 10 [Concomitant]
  7. ADDERALL 10 [Concomitant]
  8. ADDERALL 10 [Concomitant]
  9. NASONEX [Concomitant]
  10. SYNTHROID [Concomitant]
  11. METHOTREXATE [Concomitant]
  12. LEVOTHYROXINE SODIUM [Concomitant]

REACTIONS (2)
  - DYSGRAPHIA [None]
  - PARAESTHESIA [None]
